FAERS Safety Report 20900715 (Version 1)
Quarter: 2022Q2

REPORT INFORMATION
  Report Type: Spontaneous
  Country: NL (occurrence: NL)
  Receive Date: 20220601
  Receipt Date: 20220601
  Transmission Date: 20220721
  Serious: Yes (Hospitalization)
  Sender: FDA-Public Use
  Company Number: None

PATIENT
  Age: 81 Year
  Sex: Male

DRUGS (2)
  1. METHOTREXATE [Suspect]
     Active Substance: METHOTREXATE
     Indication: Muscle injury
     Dosage: BRAND NAME NOT SPECIFIED, THERAPY END DATE : ASKED BUT UNKNOWN
     Route: 065
     Dates: start: 202109
  2. FOLIC ACID [Concomitant]
     Active Substance: FOLIC ACID
     Dosage: BRAND NAME NOT SPECIFIED, THERAPY START DATE  AND  THERAPY END DATE : ASKED BUT UNKNOWN

REACTIONS (11)
  - Coma [Recovered/Resolved]
  - Vomiting [Unknown]
  - Nausea [Unknown]
  - Visual impairment [Unknown]
  - Alopecia [Unknown]
  - Herpes zoster [Recovering/Resolving]
  - Speech disorder [Recovering/Resolving]
  - Neuralgia [Recovering/Resolving]
  - Disturbance in attention [Recovering/Resolving]
  - Memory impairment [Recovering/Resolving]
  - Psychotic disorder [Recovered/Resolved]

NARRATIVE: CASE EVENT DATE: 20210901
